FAERS Safety Report 6932301-7 (Version None)
Quarter: 2010Q3

REPORT INFORMATION
  Report Type: 
  Country: None (occurrence: None)
  Receive Date: 20100813
  Receipt Date: 20100525
  Transmission Date: 20110219
  Serious: No
  Sender: FDA-Public Use
  Company Number: 1000014061

PATIENT
  Age: 38 Year
  Sex: Female

DRUGS (6)
  1. SAVELLA [Suspect]
     Indication: FIBROMYALGIA
     Dosage: 12.5 MG 912.5 MG,1 IN 1 D), ORAL; 25 (12.5 MG,2 IN 1 D), ORAL; 50 MG (25 MG,2 IN 1 D), ORAL
     Route: 048
     Dates: start: 20100405, end: 20100405
  2. SAVELLA [Suspect]
     Indication: FIBROMYALGIA
     Dosage: 12.5 MG 912.5 MG,1 IN 1 D), ORAL; 25 (12.5 MG,2 IN 1 D), ORAL; 50 MG (25 MG,2 IN 1 D), ORAL
     Route: 048
     Dates: start: 20100406, end: 20100407
  3. SAVELLA [Suspect]
     Indication: FIBROMYALGIA
     Dosage: 12.5 MG 912.5 MG,1 IN 1 D), ORAL; 25 (12.5 MG,2 IN 1 D), ORAL; 50 MG (25 MG,2 IN 1 D), ORAL
     Route: 048
     Dates: start: 20100408, end: 20100411
  4. SAVELLA [Suspect]
     Dosage: 100 MG (50 MG,2 IN 1 D), ORAL
     Route: 048
     Dates: start: 20100412, end: 20100501
  5. MOTRIN [Concomitant]
  6. SYNTHROID [Concomitant]

REACTIONS (2)
  - OROPHARYNGEAL PAIN [None]
  - THROAT TIGHTNESS [None]
